FAERS Safety Report 5133816-7 (Version None)
Quarter: 2006Q4

REPORT INFORMATION
  Report Type: 
  Country: None (occurrence: None)
  Receive Date: 20061018
  Receipt Date: 20061004
  Transmission Date: 20070319
  Serious: Yes (Hospitalization)
  Sender: FDA-Public Use
  Company Number: 2006125364

PATIENT
  Age: 60 Year
  Sex: Female
  Weight: 66.6788 kg

DRUGS (1)
  1. BEXTRA [Suspect]
     Indication: ARTHRITIS
     Dosage: 20 MG (20 MG, 1 IN 1 D)
     Dates: start: 20030101, end: 20041001

REACTIONS (1)
  - TRANSIENT ISCHAEMIC ATTACK [None]
